FAERS Safety Report 22058698 (Version 3)
Quarter: 2023Q2

REPORT INFORMATION
  Report Type: Report from Study
  Country: US (occurrence: US)
  Receive Date: 20230303
  Receipt Date: 20230613
  Transmission Date: 20230722
  Serious: Yes (Death, Other)
  Sender: FDA-Public Use
  Company Number: US-ARGENX-2022-ARGX-US002435

PATIENT
  Age: 90 Year
  Sex: Female

DRUGS (1)
  1. VYVGART [Suspect]
     Active Substance: EFGARTIGIMOD ALFA-FCAB
     Indication: Myasthenia gravis
     Dosage: 10 MG/KG, 1/WEEK
     Route: 042
     Dates: start: 20221019

REACTIONS (9)
  - Death [Fatal]
  - Respiratory failure [Unknown]
  - COVID-19 [Recovering/Resolving]
  - Pneumonia [Recovering/Resolving]
  - Peripheral swelling [Unknown]
  - Alopecia [Unknown]
  - Petechiae [Recovered/Resolved]
  - Malaise [Unknown]
  - Rash [Recovered/Resolved]

NARRATIVE: CASE EVENT DATE: 20230226
